FAERS Safety Report 4834715-8 (Version None)
Quarter: 2005Q4

REPORT INFORMATION
  Report Type: 
  Country: None (occurrence: None)
  Receive Date: 20051122
  Receipt Date: 20050706
  Transmission Date: 20060501
  Serious: No
  Sender: FDA-Public Use
  Company Number: US-BRISTOL-MYERS SQUIBB COMPANY-13029079

PATIENT
  Sex: Female

DRUGS (2)
  1. PRAVACHOL [Suspect]
  2. LIPITOR [Suspect]
     Route: 048

REACTIONS (4)
  - ASTHENIA [None]
  - BLEPHAROSPASM [None]
  - DIZZINESS [None]
  - PHOTOPSIA [None]
